FAERS Safety Report 22178400 (Version 4)
Quarter: 2025Q3

REPORT INFORMATION
  Report Type: Spontaneous
  Country: EU (occurrence: EU)
  Receive Date: 20230405
  Receipt Date: 20250826
  Transmission Date: 20251020
  Serious: Yes (Other)
  Sender: MYLAN
  Company Number: EU-PFIZER INC-202300124496

PATIENT
  Age: 11 Year
  Sex: Male

DRUGS (68)
  1. VORICONAZOLE [Suspect]
     Active Substance: VORICONAZOLE
     Indication: Fusarium infection
  2. VORICONAZOLE [Suspect]
     Active Substance: VORICONAZOLE
     Indication: Microsporum infection
     Route: 048
  3. VORICONAZOLE [Suspect]
     Active Substance: VORICONAZOLE
     Route: 048
  4. VORICONAZOLE [Suspect]
     Active Substance: VORICONAZOLE
  5. VORICONAZOLE [Suspect]
     Active Substance: VORICONAZOLE
     Indication: Fusarium infection
  6. VORICONAZOLE [Suspect]
     Active Substance: VORICONAZOLE
     Route: 061
  7. VORICONAZOLE [Suspect]
     Active Substance: VORICONAZOLE
     Route: 061
  8. VORICONAZOLE [Suspect]
     Active Substance: VORICONAZOLE
  9. TERBINAFINE [Suspect]
     Active Substance: TERBINAFINE
     Indication: Fusarium infection
  10. TERBINAFINE [Suspect]
     Active Substance: TERBINAFINE
     Indication: Microsporum infection
     Route: 065
  11. TERBINAFINE [Suspect]
     Active Substance: TERBINAFINE
     Route: 065
  12. TERBINAFINE [Suspect]
     Active Substance: TERBINAFINE
  13. AMPHOTERICIN B [Suspect]
     Active Substance: AMPHOTERICIN B
     Indication: Fusarium infection
     Route: 061
  14. AMPHOTERICIN B [Suspect]
     Active Substance: AMPHOTERICIN B
  15. AMPHOTERICIN B [Suspect]
     Active Substance: AMPHOTERICIN B
  16. AMPHOTERICIN B [Suspect]
     Active Substance: AMPHOTERICIN B
     Route: 061
  17. AMPHOTERICIN B [Suspect]
     Active Substance: AMPHOTERICIN B
     Route: 003
  18. AMPHOTERICIN B [Suspect]
     Active Substance: AMPHOTERICIN B
  19. AMPHOTERICIN B [Suspect]
     Active Substance: AMPHOTERICIN B
  20. AMPHOTERICIN B [Suspect]
     Active Substance: AMPHOTERICIN B
     Route: 003
  21. AMPHOTERICIN B [Suspect]
     Active Substance: AMPHOTERICIN B
     Indication: Fusarium infection
  22. AMPHOTERICIN B [Suspect]
     Active Substance: AMPHOTERICIN B
     Route: 042
  23. AMPHOTERICIN B [Suspect]
     Active Substance: AMPHOTERICIN B
     Route: 042
  24. AMPHOTERICIN B [Suspect]
     Active Substance: AMPHOTERICIN B
  25. CHLORHEXIDINE GLUCONATE [Suspect]
     Active Substance: CHLORHEXIDINE GLUCONATE
     Indication: Fusarium infection
  26. CHLORHEXIDINE GLUCONATE [Suspect]
     Active Substance: CHLORHEXIDINE GLUCONATE
     Route: 065
  27. CHLORHEXIDINE GLUCONATE [Suspect]
     Active Substance: CHLORHEXIDINE GLUCONATE
     Route: 065
  28. CHLORHEXIDINE GLUCONATE [Suspect]
     Active Substance: CHLORHEXIDINE GLUCONATE
  29. CHLORHEXIDINE [Concomitant]
     Active Substance: CHLORHEXIDINE
     Indication: Fusarium infection
  30. CHLORHEXIDINE [Concomitant]
     Active Substance: CHLORHEXIDINE
     Route: 061
  31. CHLORHEXIDINE [Concomitant]
     Active Substance: CHLORHEXIDINE
     Route: 061
  32. CHLORHEXIDINE [Concomitant]
     Active Substance: CHLORHEXIDINE
  33. SILVER SULFADIAZINE [Concomitant]
     Active Substance: SILVER SULFADIAZINE
     Indication: Fusarium infection
  34. SILVER SULFADIAZINE [Concomitant]
     Active Substance: SILVER SULFADIAZINE
     Route: 061
  35. SILVER SULFADIAZINE [Concomitant]
     Active Substance: SILVER SULFADIAZINE
     Route: 061
  36. SILVER SULFADIAZINE [Concomitant]
     Active Substance: SILVER SULFADIAZINE
  37. NYSTATIN [Concomitant]
     Active Substance: NYSTATIN
     Indication: Fusarium infection
  38. NYSTATIN [Concomitant]
     Active Substance: NYSTATIN
     Route: 061
  39. NYSTATIN [Concomitant]
     Active Substance: NYSTATIN
     Route: 061
  40. NYSTATIN [Concomitant]
     Active Substance: NYSTATIN
  41. IMIQUIMOD [Concomitant]
     Active Substance: IMIQUIMOD
     Indication: Fusarium infection
  42. IMIQUIMOD [Concomitant]
     Active Substance: IMIQUIMOD
     Route: 061
  43. IMIQUIMOD [Concomitant]
     Active Substance: IMIQUIMOD
     Route: 061
  44. IMIQUIMOD [Concomitant]
     Active Substance: IMIQUIMOD
  45. POSACONAZOLE [Concomitant]
     Active Substance: POSACONAZOLE
     Indication: Fusarium infection
  46. POSACONAZOLE [Concomitant]
     Active Substance: POSACONAZOLE
     Route: 065
  47. POSACONAZOLE [Concomitant]
     Active Substance: POSACONAZOLE
     Route: 065
  48. POSACONAZOLE [Concomitant]
     Active Substance: POSACONAZOLE
  49. POLIHEXANIDE HYDROCHLORIDE [Concomitant]
     Active Substance: POLIHEXANIDE HYDROCHLORIDE
     Indication: Fusarium infection
  50. POLIHEXANIDE HYDROCHLORIDE [Concomitant]
     Active Substance: POLIHEXANIDE HYDROCHLORIDE
     Route: 061
  51. POLIHEXANIDE HYDROCHLORIDE [Concomitant]
     Active Substance: POLIHEXANIDE HYDROCHLORIDE
     Route: 061
  52. POLIHEXANIDE HYDROCHLORIDE [Concomitant]
     Active Substance: POLIHEXANIDE HYDROCHLORIDE
  53. ITRACONAZOLE [Concomitant]
     Active Substance: ITRACONAZOLE
     Indication: Microsporum infection
  54. ITRACONAZOLE [Concomitant]
     Active Substance: ITRACONAZOLE
     Route: 065
  55. ITRACONAZOLE [Concomitant]
     Active Substance: ITRACONAZOLE
     Route: 065
  56. ITRACONAZOLE [Concomitant]
     Active Substance: ITRACONAZOLE
  57. ISAVUCONAZOLE [Concomitant]
     Active Substance: ISAVUCONAZOLE
     Indication: Product used for unknown indication
  58. ISAVUCONAZOLE [Concomitant]
     Active Substance: ISAVUCONAZOLE
     Route: 065
  59. ISAVUCONAZOLE [Concomitant]
     Active Substance: ISAVUCONAZOLE
     Route: 065
  60. ISAVUCONAZOLE [Concomitant]
     Active Substance: ISAVUCONAZOLE
  61. CASPOFUNGIN [Concomitant]
     Active Substance: CASPOFUNGIN
     Indication: Product used for unknown indication
  62. CASPOFUNGIN [Concomitant]
     Active Substance: CASPOFUNGIN
     Route: 065
  63. CASPOFUNGIN [Concomitant]
     Active Substance: CASPOFUNGIN
     Route: 065
  64. CASPOFUNGIN [Concomitant]
     Active Substance: CASPOFUNGIN
  65. GENTIAN VIOLET [Concomitant]
     Active Substance: GENTIAN VIOLET
     Indication: Product used for unknown indication
  66. GENTIAN VIOLET [Concomitant]
     Active Substance: GENTIAN VIOLET
     Route: 065
  67. GENTIAN VIOLET [Concomitant]
     Active Substance: GENTIAN VIOLET
     Route: 065
  68. GENTIAN VIOLET [Concomitant]
     Active Substance: GENTIAN VIOLET

REACTIONS (8)
  - Hallucination [Unknown]
  - Pathogen resistance [Unknown]
  - Drug resistance [Unknown]
  - Therapeutic product effect incomplete [Unknown]
  - Intentional product use issue [Unknown]
  - Off label use [Unknown]
  - Treatment failure [Unknown]
  - Drug ineffective [Unknown]
